FAERS Safety Report 4597842-9 (Version None)
Quarter: 2005Q1

REPORT INFORMATION
  Report Type: 
  Country: None (occurrence: None)
  Receive Date: 20050125
  Receipt Date: 20041110
  Transmission Date: 20050727
  Serious: No
  Sender: FDA-Public Use
  Company Number: USA030229737

PATIENT
  Age: 75 Year
  Sex: Female
  Weight: 51 kg

DRUGS (6)
  1. FORTEO [Suspect]
     Indication: OSTEOPOROSIS
     Dosage: 20 UG DAY
     Dates: start: 20030224
  2. ASPIRIN [Concomitant]
  3. HYZAAR [Concomitant]
  4. SYNTHROID [Concomitant]
  5. CALCIUM GLUCONATE [Concomitant]
  6. PRILOSEC [Concomitant]

REACTIONS (15)
  - ACCIDENTAL NEEDLE STICK [None]
  - ALOPECIA [None]
  - ARTHRALGIA [None]
  - BONE DENSITY INCREASED [None]
  - HEADACHE [None]
  - INJECTION SITE DISCOLOURATION [None]
  - INJECTION SITE ERYTHEMA [None]
  - INJECTION SITE HAEMORRHAGE [None]
  - INJECTION SITE IRRITATION [None]
  - INJECTION SITE MASS [None]
  - INJECTION SITE PAIN [None]
  - MUSCLE SPASMS [None]
  - OSTEOARTHRITIS [None]
  - PAIN IN EXTREMITY [None]
  - RASH MACULAR [None]
